FAERS Safety Report 10153299 (Version 1)
Quarter: 2014Q2

REPORT INFORMATION
  Report Type: Spontaneous
  Country: US (occurrence: US)
  Receive Date: 20140505
  Receipt Date: 20140505
  Transmission Date: 20141212
  Serious: Yes (Other)
  Sender: FDA-Public Use
  Company Number: US-BAYER-2014-064757

PATIENT
  Age: 72 Year
  Sex: Male

DRUGS (5)
  1. XOFIGO [Suspect]
     Indication: PROSTATE CANCER METASTATIC
     Dosage: UNK
     Dates: start: 201403
  2. VICODIN [Concomitant]
  3. SENEKOT [Concomitant]
  4. PREDNISONE [Concomitant]
     Dosage: 10 MG, QD
  5. LUPRON [Concomitant]
     Dosage: 45MG, EVERY 6MONTHS

REACTIONS (4)
  - Thrombosis [Recovered/Resolved]
  - Haemorrhage [None]
  - Bone pain [None]
  - Asthenia [None]
